FAERS Safety Report 13502423 (Version 1)
Quarter: 2017Q2

REPORT INFORMATION
  Report Type: Report from Study
  Country: JP (occurrence: JP)
  Receive Date: 20170502
  Receipt Date: 20170502
  Transmission Date: 20170830
  Serious: Yes (Other)
  Sender: FDA-Public Use
  Company Number: JP-ROCHE-1289631

PATIENT

DRUGS (8)
  1. BEVACIZUMAB [Suspect]
     Active Substance: BEVACIZUMAB
     Indication: NON-SMALL CELL LUNG CANCER
     Route: 065
  2. ERLOTINIB [Suspect]
     Active Substance: ERLOTINIB
     Indication: NON-SMALL CELL LUNG CANCER
     Route: 065
  3. CARBOPLATIN. [Suspect]
     Active Substance: CARBOPLATIN
     Indication: NON-SMALL CELL LUNG CANCER
     Route: 065
  4. PEMETREXED. [Suspect]
     Active Substance: PEMETREXED
     Indication: NON-SMALL CELL LUNG CANCER
     Route: 065
  5. PACLITAXEL. [Suspect]
     Active Substance: PACLITAXEL
     Indication: NON-SMALL CELL LUNG CANCER
     Route: 065
  6. BEVACIZUMAB [Suspect]
     Active Substance: BEVACIZUMAB
     Dosage: MAINTENANCE THERAPY
     Route: 065
  7. DOCETAXEL. [Suspect]
     Active Substance: DOCETAXEL
     Indication: NON-SMALL CELL LUNG CANCER
     Route: 065
  8. CISPLATIN. [Suspect]
     Active Substance: CISPLATIN
     Indication: NON-SMALL CELL LUNG CANCER
     Route: 065

REACTIONS (38)
  - Alanine aminotransferase increased [Unknown]
  - Decreased appetite [Unknown]
  - Headache [Unknown]
  - Duodenal ulcer [Unknown]
  - Gait disturbance [Unknown]
  - Stomatitis [Unknown]
  - Dyspnoea [Unknown]
  - Embolism [Unknown]
  - Hypoalbuminaemia [Unknown]
  - Performance status decreased [Unknown]
  - Fatigue [Unknown]
  - Infection [Unknown]
  - Meningitis [Unknown]
  - Diarrhoea [Unknown]
  - Anaemia [Unknown]
  - Thrombocytopenia [Unknown]
  - Alopecia [Unknown]
  - Hypertension [Unknown]
  - Proteinuria [Unknown]
  - Nausea [Unknown]
  - Peripheral sensory neuropathy [Unknown]
  - Blood alkaline phosphatase increased [Unknown]
  - Blood creatinine increased [Unknown]
  - Malaise [Unknown]
  - Febrile neutropenia [Unknown]
  - Dysgeusia [Unknown]
  - Leukopenia [Unknown]
  - Aspartate aminotransferase increased [Unknown]
  - Vomiting [Unknown]
  - Pyrexia [Unknown]
  - Neutropenia [Unknown]
  - Peripheral motor neuropathy [Unknown]
  - Haemorrhage [Unknown]
  - Pain [Unknown]
  - Haemoptysis [Unknown]
  - Epistaxis [Unknown]
  - Constipation [Unknown]
  - Rash macular [Unknown]
